FAERS Safety Report 17242613 (Version 1)
Quarter: 2019Q4

REPORT INFORMATION
  Report Type: Spontaneous
  Country: US (occurrence: US)
  Receive Date: 20191212
  Receipt Date: 20191212
  Transmission Date: 20200122
  Serious: Yes (Hospitalization)
  Sender: FDA-Public Use
  Company Number: None

PATIENT
  Age: 64 Year
  Sex: Female

DRUGS (1)
  1. PIQRAY [Suspect]
     Active Substance: ALPELISIB
     Indication: BREAST CANCER
     Route: 048
     Dates: start: 20191116

REACTIONS (8)
  - Loss of consciousness [None]
  - Fall [None]
  - Seizure [None]
  - Ketoacidosis [None]
  - Blood electrolytes normal [None]
  - Renal failure [None]
  - Blood glucose increased [None]
  - Joint dislocation [None]

NARRATIVE: CASE EVENT DATE: 20191130
